FAERS Safety Report 17159609 (Version 2)
Quarter: 2020Q1

REPORT INFORMATION
  Report Type: Spontaneous
  Country: BR (occurrence: BR)
  Receive Date: 20191216
  Receipt Date: 20200114
  Transmission Date: 20200409
  Serious: Yes (Other)
  Sender: FDA-Public Use
  Company Number: NVSC2019BR069154

PATIENT
  Sex: Female

DRUGS (1)
  1. TRILEPTAL [Suspect]
     Active Substance: OXCARBAZEPINE
     Indication: EPILEPSY
     Dosage: 6.5 ML, TID, ALMOST 9 YEARS
     Route: 065

REACTIONS (3)
  - Autism spectrum disorder [Unknown]
  - Psychomotor retardation [Unknown]
  - Incorrect dose administered [Unknown]
